FAERS Safety Report 8572091-8 (Version None)
Quarter: 2012Q3

REPORT INFORMATION
  Report Type: 
  Country: None (occurrence: None)
  Receive Date: 20120806
  Receipt Date: 20120802
  Transmission Date: 20120928
  Serious: Yes (Death, Hospitalization)
  Sender: FDA-Public Use
  Company Number: PHHO2012US004930

PATIENT
  Sex: Male

DRUGS (6)
  1. PREDNISONE [Concomitant]
     Indication: IMMUNOSUPPRESSION
     Dosage: 5 MG, QD
     Route: 048
     Dates: start: 20110607
  2. PROGRAF [Suspect]
     Dosage: 1 MG, BID
     Route: 048
     Dates: start: 20110608
  3. PROGRAF [Suspect]
     Indication: IMMUNOSUPPRESSION
     Dosage: 1 MG, BID
     Route: 048
     Dates: start: 20110128
  4. COUMADIN [Concomitant]
     Indication: DEEP VEIN THROMBOSIS
     Dosage: UNK
     Dates: end: 20111017
  5. CERTICAN [Suspect]
     Indication: RENAL TRANSPLANT
     Dosage: 1.5 MG, BID
     Route: 048
     Dates: start: 20110127
  6. PREDNISONE [Concomitant]
     Dosage: 5 MG, BID
     Route: 048
     Dates: start: 20110728

REACTIONS (3)
  - PULMONARY EMBOLISM [None]
  - DIARRHOEA [None]
  - GASTROENTERITIS SALMONELLA [None]
